FAERS Safety Report 8290304-7 (Version None)
Quarter: 2012Q2

REPORT INFORMATION
  Report Type: 
  Country: None (occurrence: None)
  Receive Date: 20120417
  Receipt Date: 20120402
  Transmission Date: 20120825
  Serious: Yes (Other)
  Sender: FDA-Public Use
  Company Number: PHHY2012FR028836

PATIENT
  Age: 19 Year
  Sex: Male

DRUGS (2)
  1. CYCLOSPORINE [Suspect]
     Indication: PROPHYLAXIS AGAINST GRAFT VERSUS HOST DISEASE
     Dosage: UNK UKN, UNK
  2. MYCOPHENOLATE MOFETIL [Concomitant]
     Indication: PROPHYLAXIS AGAINST GRAFT VERSUS HOST DISEASE
     Dosage: UNK UKN, UNK

REACTIONS (9)
  - HEPATIC CIRRHOSIS [None]
  - HEPATITIS [None]
  - PORTAL HYPERTENSION [None]
  - GRAFT VERSUS HOST DISEASE IN LIVER [None]
  - ACUTE GRAFT VERSUS HOST DISEASE IN SKIN [None]
  - GRAFT VERSUS HOST DISEASE IN INTESTINE [None]
  - LIVER FUNCTION TEST ABNORMAL [None]
  - NODULAR REGENERATIVE HYPERPLASIA [None]
  - OESOPHAGEAL HAEMORRHAGE [None]
